FAERS Safety Report 5034015-X (Version None)
Quarter: 2006Q2

REPORT INFORMATION
  Report Type: 
  Country: None (occurrence: None)
  Receive Date: 20060626
  Receipt Date: 20060619
  Transmission Date: 20061013
  Serious: Yes (Hospitalization)
  Sender: FDA-Public Use
  Company Number: FR-AVENTIS-200612189FR

PATIENT
  Age: 60 Year
  Sex: Male

DRUGS (4)
  1. BIRODOGYL [Suspect]
     Indication: DENTAL CARE
     Route: 048
     Dates: start: 20051217
  2. TRILEPTAL [Concomitant]
     Route: 048
     Dates: start: 20040101, end: 20051201
  3. TRILEPTAL [Concomitant]
     Route: 048
     Dates: start: 20051201
  4. KEPPRA [Concomitant]
     Route: 048
     Dates: start: 20040101

REACTIONS (5)
  - APHASIA [None]
  - HYPOAESTHESIA [None]
  - MOTOR DYSFUNCTION [None]
  - MYOCLONUS [None]
  - PARAESTHESIA [None]
